FAERS Safety Report 8163453-1 (Version None)
Quarter: 2012Q1

REPORT INFORMATION
  Report Type: 
  Country: None (occurrence: None)
  Receive Date: 20120221
  Receipt Date: 20120208
  Transmission Date: 20120608
  Serious: Yes (Hospitalization)
  Sender: FDA-Public Use
  Company Number: TPA2012A00830

PATIENT
  Age: 80 Year
  Sex: Male

DRUGS (3)
  1. LAMOTRIGINE [Suspect]
     Dosage: ORAL
     Route: 048
     Dates: start: 20110101
  2. ADENURIC (FEBUXOSTAT) [Suspect]
     Indication: GOUT
     Dosage: 80 MG, 1 IN 1 D, ORAL
     Route: 048
     Dates: start: 20111001, end: 20120206
  3. VALSARTAN  AND HYDROCHLOROTHIAZIDE [Suspect]
     Indication: HYPERTENSION
     Dosage: 1 IN 1 D,ORAL
     Route: 048
     Dates: start: 20120130, end: 20120206

REACTIONS (1)
  - VASCULITIS NECROTISING [None]
